FAERS Safety Report 25378840 (Version 2)
Quarter: 2025Q3

REPORT INFORMATION
  Report Type: Report from Study
  Country: US (occurrence: US)
  Receive Date: 20250530
  Receipt Date: 20250806
  Transmission Date: 20251021
  Serious: Yes (Other)
  Sender: TAKEDA
  Company Number: US-TAKEDA-2025TUS023014

PATIENT
  Sex: Male
  Weight: 65 kg

DRUGS (2)
  1. VEDOLIZUMAB [Suspect]
     Active Substance: VEDOLIZUMAB
     Indication: Colitis ulcerative
     Dosage: 108 MILLIGRAM, Q2WEEKS
  2. VEDOLIZUMAB [Suspect]
     Active Substance: VEDOLIZUMAB

REACTIONS (8)
  - Haematochezia [Unknown]
  - Colitis ulcerative [Unknown]
  - Defaecation urgency [Unknown]
  - Product dose omission issue [Unknown]
  - Product storage error [Unknown]
  - Weight decreased [Unknown]
  - Injection site extravasation [Unknown]
  - Wrong technique in product usage process [Unknown]
